FAERS Safety Report 14776632 (Version 1)
Quarter: 2018Q2

REPORT INFORMATION
  Report Type: Report from Study
  Country: None (occurrence: BR)
  Receive Date: 20180418
  Receipt Date: 20180418
  Transmission Date: 20180711
  Serious: Yes (Death, Other)
  Sender: FDA-Public Use
  Company Number: BR-ABBVIE-18K-020-2326310-00

PATIENT
  Age: 49 Year
  Sex: Female
  Weight: 48 kg

DRUGS (2)
  1. GOLIMUMAB [Concomitant]
     Active Substance: GOLIMUMAB
     Indication: ARTHRITIS
  2. HUMIRA [Suspect]
     Active Substance: ADALIMUMAB
     Indication: RHEUMATOID ARTHRITIS
     Route: 058
     Dates: start: 20170705, end: 201712

REACTIONS (9)
  - Myocardial infarction [Fatal]
  - Feeling hot [Not Recovered/Not Resolved]
  - Drug ineffective [Recovering/Resolving]
  - Decreased appetite [Not Recovered/Not Resolved]
  - Gastric disorder [Not Recovered/Not Resolved]
  - Tongue disorder [Not Recovered/Not Resolved]
  - Blood pressure fluctuation [Not Recovered/Not Resolved]
  - Cardiac disorder [Unknown]
  - Anaemia [Not Recovered/Not Resolved]

NARRATIVE: CASE EVENT DATE: 201711
